FAERS Safety Report 5800039-5 (Version None)
Quarter: 2008Q3

REPORT INFORMATION
  Report Type: 
  Country: None (occurrence: None)
  Receive Date: 20080703
  Receipt Date: 20080626
  Transmission Date: 20090109
  Serious: Yes (Hospitalization)
  Sender: FDA-Public Use
  Company Number: US-AMGEN-US282946

PATIENT
  Sex: Female

DRUGS (10)
  1. ENBREL [Suspect]
     Indication: RHEUMATOID ARTHRITIS
     Route: 058
     Dates: start: 20021216, end: 20051205
  2. PREDNISONE 50MG TAB [Concomitant]
     Route: 048
     Dates: start: 20020523
  3. SULFASALAZINE [Concomitant]
     Route: 048
     Dates: start: 20040621
  4. DIGOXIN [Concomitant]
     Route: 065
  5. LEVOXYL [Concomitant]
     Route: 065
  6. VERAPAMIL [Concomitant]
     Route: 065
  7. ACTONEL [Concomitant]
     Route: 065
     Dates: start: 20020606
  8. METHOTREXATE [Concomitant]
     Route: 065
     Dates: start: 20020606
  9. COMBIVENT [Concomitant]
     Route: 065
  10. FOLATE SODIUM [Concomitant]
     Route: 065
     Dates: start: 20020606

REACTIONS (2)
  - ARTERIAL BYPASS OPERATION [None]
  - TOE AMPUTATION [None]
